FAERS Safety Report 24719729 (Version 1)
Quarter: 2024Q4

REPORT INFORMATION
  Report Type: Spontaneous
  Country: US (occurrence: US)
  Receive Date: 20241211
  Receipt Date: 20241211
  Transmission Date: 20250115
  Serious: Yes (Other)
  Sender: CHEPLAPHARM
  Company Number: US-CHEPLA-2024015535

PATIENT
  Age: 19 Year

DRUGS (4)
  1. TRETINOIN [Suspect]
     Active Substance: TRETINOIN
  2. HYDROXYUREA [Suspect]
     Active Substance: HYDROXYUREA
  3. DEXAMETHASONE [Concomitant]
     Active Substance: DEXAMETHASONE
  4. IDARUBICIN [Concomitant]
     Active Substance: IDARUBICIN

REACTIONS (8)
  - Acute respiratory distress syndrome [Unknown]
  - Pulmonary oedema [Unknown]
  - Hypoxia [Unknown]
  - Oxygen saturation decreased [Unknown]
  - Bronchospasm [Unknown]
  - Acidosis [Unknown]
  - Exposure during pregnancy [Unknown]
  - Caesarean section [Recovered/Resolved]
